FAERS Safety Report 23351213 (Version 1)
Quarter: 2023Q4

REPORT INFORMATION
  Report Type: Report from Study
  Country: PE (occurrence: PE)
  Receive Date: 20231229
  Receipt Date: 20231229
  Transmission Date: 20240109
  Serious: Yes (Hospitalization)
  Sender: FDA-Public Use
  Company Number: PE-BAYER-2023A183410

PATIENT
  Age: 33 Year
  Sex: Female

DRUGS (1)
  1. NEXAVAR [Suspect]
     Active Substance: SORAFENIB
     Dosage: 400 MG, BID

REACTIONS (2)
  - Neoplasm malignant [Unknown]
  - Somnolence [Unknown]

NARRATIVE: CASE EVENT DATE: 20231218
